FAERS Safety Report 7680835-2 (Version None)
Quarter: 2011Q3

REPORT INFORMATION
  Report Type: 
  Country: None (occurrence: None)
  Receive Date: 20110812
  Receipt Date: 20110809
  Transmission Date: 20111222
  Serious: Yes (Death, Life-Threatening, Hospitalization)
  Sender: FDA-Public Use
  Company Number: DE-MERCK-1106DEU00051

PATIENT
  Age: 75 Year
  Sex: Female
  Weight: 100 kg

DRUGS (4)
  1. TORSEMIDE [Concomitant]
     Route: 048
     Dates: start: 20060101
  2. JANUMET [Suspect]
     Indication: TYPE 2 DIABETES MELLITUS
     Route: 048
     Dates: start: 20110111, end: 20110309
  3. XIPAMIDE [Concomitant]
     Indication: OEDEMA PERIPHERAL
     Route: 048
     Dates: start: 20110111
  4. HYDROCHLOROTHIAZIDE AND VALSARTAN [Concomitant]
     Indication: HYPERTENSION
     Route: 048
     Dates: start: 20030401

REACTIONS (10)
  - LEUKOCYTOCLASTIC VASCULITIS [None]
  - RENAL FAILURE ACUTE [None]
  - SEPSIS [None]
  - ACIDOSIS [None]
  - SUPERINFECTION BACTERIAL [None]
  - GASTROENTERITIS CLOSTRIDIAL [None]
  - DYSPNOEA [None]
  - MASS [None]
  - GENERAL PHYSICAL HEALTH DETERIORATION [None]
  - INTERTRIGO [None]
